FAERS Safety Report 5443269-7 (Version None)
Quarter: 2007Q3

REPORT INFORMATION
  Report Type: 
  Country: None (occurrence: None)
  Receive Date: 20070905
  Receipt Date: 20070828
  Transmission Date: 20080115
  Serious: Yes (Other)
  Sender: FDA-Public Use
  Company Number: US-AMGEN-US240928

PATIENT
  Sex: Female
  Weight: 73.1 kg

DRUGS (4)
  1. PROCRIT [Suspect]
     Indication: ANAEMIA OF MALIGNANT DISEASE
     Dates: start: 20051001, end: 20060901
  2. ARANESP [Suspect]
     Indication: ANAEMIA OF MALIGNANT DISEASE
     Dates: start: 20060901, end: 20070807
  3. ATIVAN [Concomitant]
  4. AMBIEN [Concomitant]

REACTIONS (3)
  - MYELODYSPLASTIC SYNDROME [None]
  - SARCOIDOSIS [None]
  - THERAPEUTIC RESPONSE DECREASED [None]
